FAERS Safety Report 9633625 (Version 3)
Quarter: 2013Q4

REPORT INFORMATION
  Report Type: Spontaneous
  Country: JP (occurrence: JP)
  Receive Date: 20131021
  Receipt Date: 20131205
  Transmission Date: 20140711
  Serious: Yes (Hospitalization)
  Sender: FDA-Public Use
  Company Number: JP-ABBVIE-13P-087-1154652-00

PATIENT
  Age: 44 Year
  Sex: Male
  Weight: 51.8 kg

DRUGS (4)
  1. CLARITHROMYCIN [Suspect]
     Indication: ATYPICAL MYCOBACTERIAL INFECTION
  2. RIFAMPICIN [Suspect]
     Indication: ATYPICAL MYCOBACTERIAL INFECTION
  3. ETHAMBUTOL [Suspect]
     Indication: ATYPICAL MYCOBACTERIAL INFECTION
  4. AMIKACIN [Suspect]
     Indication: ATYPICAL MYCOBACTERIAL INFECTION

REACTIONS (2)
  - Adverse drug reaction [Recovering/Resolving]
  - Hepatic function abnormal [Recovering/Resolving]
